FAERS Safety Report 6403544-6 (Version None)
Quarter: 2009Q4

REPORT INFORMATION
  Report Type: 
  Country: None (occurrence: None)
  Receive Date: 20091015
  Receipt Date: 20091015
  Transmission Date: 20100525
  Serious: Yes (Other)
  Sender: FDA-Public Use
  Company Number: None

PATIENT
  Age: 77 Year
  Sex: Male

DRUGS (5)
  1. CLINDAMYCIN HCL [Suspect]
     Indication: INFECTION
     Dosage: 150MG  FOUR TIMES DAILY PO
     Route: 048
  2. PANTOPRAZOLE SODIUM [Concomitant]
  3. LUMIGAN [Concomitant]
  4. FLOMAX [Concomitant]
  5. HYTRIN [Concomitant]

REACTIONS (1)
  - ASCITES [None]
